FAERS Safety Report 6231563-1 (Version None)
Quarter: 2009Q2

REPORT INFORMATION
  Report Type: 
  Country: None (occurrence: None)
  Receive Date: 20090611
  Receipt Date: 20090526
  Transmission Date: 20091009
  Serious: Yes (Other)
  Sender: FDA-Public Use
  Company Number: 1-18618131

PATIENT
  Age: 15 Year
  Sex: Male

DRUGS (2)
  1. OXCARBAZEPINE [Suspect]
     Indication: EPILEPSY
     Dosage: 900 MG TWICE DAILY, ORAL
     Route: 048
  2. TEMOZOLOMIDE [Suspect]
     Indication: GLIOMATOSIS CEREBRI
     Dosage: 200 MG/M^2 DAILY, ORAL; 5 DAYS IN 4 WK CYCLE
     Route: 048

REACTIONS (1)
  - HAIR FOLLICLE TUMOUR BENIGN [None]
